FAERS Safety Report 10878939 (Version 1)
Quarter: 2015Q1

REPORT INFORMATION
  Report Type: Spontaneous
  Country: US (occurrence: None)
  Receive Date: 20150225
  Receipt Date: 20150225
  Transmission Date: 20150721
  Serious: Yes (Other)
  Sender: FDA-Public Use
  Company Number: 2015EXPUS00306

PATIENT
  Sex: Male

DRUGS (1)
  1. EXPAREL [Suspect]
     Active Substance: BUPIVACAINE
     Indication: POSTOPERATIVE ANALGESIA
     Dosage: 20 ML, 1X, INJECTED IN SOFT TISSUE AROUND INCISION SITE AND SOME INTO DEEPER TISSUE, OTHER

REACTIONS (3)
  - Bacterial test positive [None]
  - Injection site infection [None]
  - Suspected transmission of an infectious agent via product [None]
